FAERS Safety Report 6859249-0 (Version None)
Quarter: 2010Q3

REPORT INFORMATION
  Report Type: 
  Country: None (occurrence: None)
  Receive Date: 20100719
  Receipt Date: 20080303
  Transmission Date: 20110219
  Serious: Yes (Other)
  Sender: FDA-Public Use
  Company Number: US-PFIZER INC-2008018120

PATIENT
  Sex: Female
  Weight: 59 kg

DRUGS (3)
  1. CHANTIX [Suspect]
     Indication: SMOKING CESSATION THERAPY
     Dates: start: 20080201, end: 20080221
  2. LAMICTAL [Concomitant]
  3. SEROQUEL [Concomitant]

REACTIONS (3)
  - IRRITABILITY [None]
  - NAUSEA [None]
  - PSYCHOTIC DISORDER [None]
